FAERS Safety Report 17577722 (Version 1)
Quarter: 2020Q1

REPORT INFORMATION
  Report Type: Spontaneous
  Country: FR (occurrence: FR)
  Receive Date: 20200324
  Receipt Date: 20200324
  Transmission Date: 20200409
  Serious: Yes (Other)
  Sender: FDA-Public Use
  Company Number: FR-JNJFOC-20200326196

PATIENT
  Age: 54 Year
  Sex: Male
  Weight: 122 kg

DRUGS (7)
  1. DOLUTEGRAVIR [Suspect]
     Active Substance: DOLUTEGRAVIR
     Indication: HIV INFECTION
     Route: 048
     Dates: start: 20160503, end: 20200102
  2. UVEDOSE [Concomitant]
     Active Substance: CHOLECALCIFEROL
  3. EDURANT [Suspect]
     Active Substance: RILPIVIRINE HYDROCHLORIDE
     Indication: HIV INFECTION
     Route: 048
     Dates: start: 20160503, end: 20200102
  4. REPAGLINIDE TEVA [Concomitant]
  5. TRESIBA [Concomitant]
     Active Substance: INSULIN DEGLUDEC
  6. METFORMINE [Concomitant]
     Active Substance: METFORMIN HYDROCHLORIDE
  7. ATACAND [Concomitant]
     Active Substance: CANDESARTAN CILEXETIL
     Dosage: EDURANT DU 03/05/2016 AU 05/09/2019 PUIS JULUCA DU 05/09/2019 AU 02/01/2020
     Route: 048
     Dates: start: 20160503, end: 20200102

REACTIONS (2)
  - Weight increased [Not Recovered/Not Resolved]
  - Lipodystrophy acquired [Not Recovered/Not Resolved]

NARRATIVE: CASE EVENT DATE: 2016
